FAERS Safety Report 4352910-1 (Version None)
Quarter: 2004Q2

REPORT INFORMATION
  Report Type: 
  Country: None (occurrence: None)
  Receive Date: 20040429
  Receipt Date: 20040416
  Transmission Date: 20050107
  Serious: Yes (Hospitalization)
  Sender: FDA-Public Use
  Company Number: 163-20785-04040612

PATIENT
  Age: 64 Year
  Sex: Female

DRUGS (3)
  1. THALIDOMIDE (THALIDOMIDE) (CAPSULES) [Suspect]
     Indication: MULTIPLE MYELOMA
     Dosage: 100 MG, DAILY, ORAL
     Route: 048
     Dates: start: 20020201
  2. MELPHALAN (MELPHALAN) [Concomitant]
  3. PREDNISONE [Concomitant]

REACTIONS (11)
  - ACUTE MYELOID LEUKAEMIA [None]
  - BACK PAIN [None]
  - DISEASE PROGRESSION [None]
  - DYSPNOEA [None]
  - ECCHYMOSIS [None]
  - HAEMORRHAGE [None]
  - MYELODYSPLASTIC SYNDROME [None]
  - PANCYTOPENIA [None]
  - PRODUCTIVE COUGH [None]
  - SEPSIS [None]
  - TACHYPNOEA [None]
